FAERS Safety Report 5525556-7 (Version None)
Quarter: 2007Q4

REPORT INFORMATION
  Report Type: 
  Country: None (occurrence: None)
  Receive Date: 20071126
  Receipt Date: 20071116
  Transmission Date: 20080405
  Serious: Yes (Hospitalization)
  Sender: FDA-Public Use
  Company Number: B0490427A

PATIENT
  Age: 55 Year
  Sex: Female
  Weight: 55 kg

DRUGS (3)
  1. ARIXTRA [Suspect]
     Indication: PHLEBITIS
     Dosage: 7.5MG PER DAY
     Route: 058
     Dates: start: 20070901
  2. HYCAMTIN [Suspect]
     Indication: OVARIAN NEOPLASM
     Dates: start: 20060601
  3. RADIOACTIVE IODINE [Concomitant]
     Indication: BASEDOW'S DISEASE

REACTIONS (7)
  - ALLODYNIA [None]
  - CONSTIPATION [None]
  - DIARRHOEA [None]
  - DIARRHOEA HAEMORRHAGIC [None]
  - ENTEROCOLITIS HAEMORRHAGIC [None]
  - ILIAC ARTERY STENOSIS [None]
  - ILL-DEFINED DISORDER [None]
